FAERS Safety Report 5307480-8 (Version None)
Quarter: 2007Q1

REPORT INFORMATION
  Report Type: 
  Country: None (occurrence: None)
  Receive Date: 20070201
  Receipt Date: 20061208
  Transmission Date: 20070707
  Serious: No
  Sender: FDA-Public Use
  Company Number: 2006PV026706

PATIENT
  Age: 78 Year
  Sex: Male
  Weight: 66.2252 kg

DRUGS (5)
  1. BYETTA [Suspect]
     Indication: DIABETES MELLITUS NON-INSULIN-DEPENDENT
     Dosage: 5 MCG;BID;SC
     Route: 058
     Dates: start: 20061205
  2. STERIOD INJECTION [Suspect]
     Indication: BACK PAIN
     Dates: start: 20061207, end: 20061207
  3. GLUCOPHAGE [Concomitant]
  4. AMARYL [Concomitant]
  5. HUMALOG [Concomitant]

REACTIONS (1)
  - BLOOD GLUCOSE INCREASED [None]
